FAERS Safety Report 20466435 (Version 1)
Quarter: 2022Q1

REPORT INFORMATION
  Report Type: Spontaneous
  Country: US (occurrence: US)
  Receive Date: 20220213
  Receipt Date: 20220213
  Transmission Date: 20220423
  Serious: No
  Sender: FDA-Public Use
  Company Number: US-SA-SAC20220210000062

PATIENT
  Age: 66 Year
  Sex: Male

DRUGS (12)
  1. DUPIXENT [Suspect]
     Active Substance: DUPILUMAB
     Indication: Nasal polyps
     Dosage: 300 MG, QOW
     Route: 058
     Dates: start: 20191118
  2. DOCUSATE CALCIUM [Concomitant]
     Active Substance: DOCUSATE CALCIUM
  3. TURMERIC [Concomitant]
     Active Substance: TURMERIC
  4. ELIQUIS [Concomitant]
     Active Substance: APIXABAN
  5. RELPAX [Concomitant]
     Active Substance: ELETRIPTAN HYDROBROMIDE
  6. IPRATROPIUM BROMIDE [Concomitant]
     Active Substance: IPRATROPIUM BROMIDE
  7. AMBIEN [Concomitant]
     Active Substance: ZOLPIDEM TARTRATE
  8. PROPAFENONE [Concomitant]
     Active Substance: PROPAFENONE
     Dosage: 225MG
  9. DILTIAZEM [Concomitant]
     Active Substance: DILTIAZEM
     Dosage: 120MG
  10. FAMOTIDINE [Concomitant]
     Active Substance: FAMOTIDINE
  11. PROSTATE COMPLEX [Concomitant]
  12. MODERNA COVID-19 VACCINE [Concomitant]
     Active Substance: ELASOMERAN
     Indication: Immunisation

REACTIONS (1)
  - Product use in unapproved indication [Unknown]

NARRATIVE: CASE EVENT DATE: 20191118
